FAERS Safety Report 5681833-0 (Version None)
Quarter: 2008Q1

REPORT INFORMATION
  Report Type: 
  Country: None (occurrence: None)
  Receive Date: 20080327
  Receipt Date: 20070315
  Transmission Date: 20080703
  Serious: No
  Sender: FDA-Public Use
  Company Number: US-BAYER-US-2007-009325

PATIENT
  Age: 31 Year
  Sex: Female
  Weight: 111 kg

DRUGS (2)
  1. MIRENA [Suspect]
     Indication: CONTRACEPTION
     Route: 015
     Dates: start: 20070215
  2. MAXZIDE [Concomitant]
     Dosage: UNIT DOSE: 25 MG

REACTIONS (1)
  - POST PROCEDURAL HAEMORRHAGE [None]
